FAERS Safety Report 7733830-9 (Version None)
Quarter: 2011Q3

REPORT INFORMATION
  Report Type: 
  Country: None (occurrence: None)
  Receive Date: 20110907
  Receipt Date: 20110823
  Transmission Date: 20111222
  Serious: Yes (Other)
  Sender: FDA-Public Use
  Company Number: JP-JNJFOC-20110901567

PATIENT
  Age: 84 Year
  Sex: Female

DRUGS (3)
  1. UNKNOWN MEDICATION [Suspect]
     Indication: MUSCULOSKELETAL PAIN
     Route: 065
  2. VOLTAREN [Suspect]
     Indication: MUSCULOSKELETAL PAIN
     Route: 065
  3. TRAMADOL HYDROCHLORIDE/ACETAMINOPHEN [Suspect]
     Indication: MUSCULOSKELETAL PAIN
     Dosage: ONCE A  DAY
     Route: 048

REACTIONS (2)
  - MELAENA [None]
  - GASTRIC ULCER [None]
